FAERS Safety Report 23578685 (Version 1)
Quarter: 2024Q1

REPORT INFORMATION
  Report Type: Spontaneous
  Country: AU (occurrence: AU)
  Receive Date: 20240229
  Receipt Date: 20240229
  Transmission Date: 20240410
  Serious: Yes (Other)
  Sender: FDA-Public Use
  Company Number: AU-BIOVITRUM-2024-AU-003085

PATIENT
  Age: 86 Year
  Sex: Female

DRUGS (1)
  1. AVATROMBOPAG [Suspect]
     Active Substance: AVATROMBOPAG
     Indication: Product used for unknown indication
     Dates: start: 20231204, end: 20231221

REACTIONS (1)
  - Drug reaction with eosinophilia and systemic symptoms [Unknown]
